FAERS Safety Report 10258153 (Version 1)
Quarter: 2014Q2

REPORT INFORMATION
  Report Type: Spontaneous
  Country: US (occurrence: None)
  Receive Date: 20140623
  Receipt Date: 20140623
  Transmission Date: 20141212
  Serious: Yes (Other)
  Sender: FDA-Public Use
  Company Number: UNT-2014-002248

PATIENT
  Age: 70 Year
  Sex: Male

DRUGS (4)
  1. REMODULIN (TREPROSTINIL SODIUM) INJECTION, 10MG/ML [Suspect]
     Indication: COR PULMONALE CHRONIC
     Route: 041
     Dates: start: 20101004
  2. COUMADIN (WARFARIN SODIUM) [Concomitant]
  3. LETAIRIS (AMBRISENTAN) [Concomitant]
  4. SILDENAFIL CITRATE (SILDENAFIL CITRATE) [Concomitant]

REACTIONS (4)
  - Loss of consciousness [None]
  - Flushing [None]
  - Nausea [None]
  - Accidental overdose [None]
